FAERS Safety Report 6224076-4 (Version None)
Quarter: 2009Q2

REPORT INFORMATION
  Report Type: 
  Country: None (occurrence: None)
  Receive Date: 20090612
  Receipt Date: 20090324
  Transmission Date: 20091009
  Serious: Yes (Hospitalization)
  Sender: FDA-Public Use
  Company Number: US-ABBOTT-09P-163-0561530-00

PATIENT
  Sex: Male
  Weight: 59.02 kg

DRUGS (2)
  1. HUMIRA [Suspect]
     Indication: CROHN'S DISEASE
     Route: 058
     Dates: start: 20080404
  2. HUMIRA [Suspect]

REACTIONS (4)
  - COUGH [None]
  - INCREASED UPPER AIRWAY SECRETION [None]
  - INFLUENZA [None]
  - PYREXIA [None]
